FAERS Safety Report 16196221 (Version 3)
Quarter: 2025Q3

REPORT INFORMATION
  Report Type: Spontaneous
  Country: EU (occurrence: EU)
  Receive Date: 20190415
  Receipt Date: 20250722
  Transmission Date: 20251020
  Serious: Yes (Death, Life-Threatening, Other)
  Sender: AUROBINDO
  Company Number: EU-AUROBINDO-AUR-APL-2019-019387

PATIENT
  Age: 67 Year
  Sex: Male

DRUGS (6)
  1. OXALIPLATIN [Suspect]
     Active Substance: OXALIPLATIN
     Indication: Rectal neoplasm
     Route: 065
  2. FLUOROURACIL [Interacting]
     Active Substance: FLUOROURACIL
     Indication: Rectal cancer
     Route: 065
     Dates: start: 20160914
  3. BRIVUDINE [Interacting]
     Active Substance: BRIVUDINE
     Indication: Folliculitis
     Dosage: 125 MILLIGRAM, ONCE A DAY
     Route: 048
     Dates: start: 20170118, end: 20170124
  4. PANITUMUMAB [Suspect]
     Active Substance: PANITUMUMAB
     Indication: Rectal neoplasm
     Route: 065
  5. LEUCOVORIN CALCIUM [Suspect]
     Active Substance: LEUCOVORIN CALCIUM
     Indication: Rectal neoplasm
     Route: 065
  6. LEUCOVORIN [Concomitant]
     Active Substance: LEUCOVORIN\LEUCOVORIN CALCIUM
     Indication: Product used for unknown indication
     Route: 065

REACTIONS (6)
  - Mucosal inflammation [Fatal]
  - Multiple organ dysfunction syndrome [Fatal]
  - Pancytopenia [Fatal]
  - Unintentional use for unapproved indication [Recovered/Resolved]
  - Labelled drug-drug interaction medication error [Recovered/Resolved]
  - Folliculitis [Unknown]

NARRATIVE: CASE EVENT DATE: 20170118
